FAERS Safety Report 7623063-9 (Version None)
Quarter: 2011Q3

REPORT INFORMATION
  Report Type: 
  Country: None (occurrence: None)
  Receive Date: 20110720
  Receipt Date: 20110715
  Transmission Date: 20111222
  Serious: Yes (Other)
  Sender: FDA-Public Use
  Company Number: US-PFIZER INC-2011162095

PATIENT
  Age: 60 Year
  Sex: Female

DRUGS (1)
  1. DILANTIN [Suspect]
     Dosage: UNK
     Dates: start: 19550101

REACTIONS (2)
  - CARDIAC DISORDER [None]
  - CEREBRAL HAEMORRHAGE [None]
